FAERS Safety Report 21273559 (Version 1)
Quarter: 2022Q3

REPORT INFORMATION
  Report Type: Spontaneous
  Country: US (occurrence: None)
  Receive Date: 20220830
  Receipt Date: 20220830
  Transmission Date: 20221027
  Serious: Yes (Hospitalization)
  Sender: FDA-Public Use
  Company Number: None

PATIENT
  Age: 74 Year
  Sex: Female
  Weight: 53 kg

DRUGS (1)
  1. PAXLOVID [Suspect]
     Active Substance: NIRMATRELVIR\RITONAVIR
     Indication: COVID-19
     Dosage: FREQUENCY : TWICE A DAY;?
     Route: 048
     Dates: start: 20220721, end: 20220723

REACTIONS (5)
  - Hyponatraemia [None]
  - Viral infection [None]
  - Condition aggravated [None]
  - Blood creatinine increased [None]
  - Asthenia [None]

NARRATIVE: CASE EVENT DATE: 20220723
